FAERS Safety Report 15470577 (Version 2)
Quarter: 2018Q4

REPORT INFORMATION
  Report Type: Spontaneous
  Country: JP (occurrence: JP)
  Receive Date: 20181005
  Receipt Date: 20181005
  Transmission Date: 20190205
  Serious: Yes (Death)
  Sender: FDA-Public Use
  Company Number: PHJP2018JP017295

PATIENT
  Age: 66 Year
  Sex: Male

DRUGS (3)
  1. PLATELETS [Concomitant]
     Active Substance: HUMAN PLATELET, ALLOGENIC
     Indication: CASTLEMAN^S DISEASE
     Dosage: UNK
     Route: 065
  2. CICLOSPORIN [Suspect]
     Active Substance: CYCLOSPORINE
     Indication: CASTLEMAN^S DISEASE
     Dosage: UNK
     Route: 065
  3. PREDNISOLONE. [Concomitant]
     Active Substance: PREDNISOLONE
     Indication: CASTLEMAN^S DISEASE
     Dosage: 60 MG, UNK
     Route: 065

REACTIONS (4)
  - Defect conduction intraventricular [Fatal]
  - Aspergillus infection [Fatal]
  - Cardiac arrest [Fatal]
  - Product use in unapproved indication [Unknown]
